FAERS Safety Report 4890628-7 (Version None)
Quarter: 2006Q1

REPORT INFORMATION
  Report Type: 
  Country: None (occurrence: None)
  Receive Date: 20060120
  Receipt Date: 20060111
  Transmission Date: 20060701
  Serious: No
  Sender: FDA-Public Use
  Company Number: 06H-062-0304379-00

PATIENT
  Age: 49 Year
  Sex: Female

DRUGS (2)
  1. DESMOPRESSIN ACETATE [Suspect]
     Indication: DIABETES INSIPIDUS
     Dosage: PER DAY, INTRAVENOUS
     Route: 042
  2. DESMOPRESSIN ACETATE [Suspect]
     Dosage: PER DAY, INTRA-NASAL

REACTIONS (4)
  - ENCEPHALOPATHY [None]
  - HYPONATRAEMIA [None]
  - OVERDOSE [None]
  - THERAPY NON-RESPONDER [None]
